FAERS Safety Report 10038542 (Version 2)
Quarter: 2014Q2

REPORT INFORMATION
  Report Type: Spontaneous
  Country: FR (occurrence: FR)
  Receive Date: 20140326
  Receipt Date: 20140520
  Transmission Date: 20141212
  Serious: Yes (Hospitalization)
  Sender: FDA-Public Use
  Company Number: FR-EISAI INC-E2080-00707-SPO-FR

PATIENT
  Age: 6 Year
  Sex: Female

DRUGS (5)
  1. INOVELON [Suspect]
     Indication: CONVULSION
     Dates: start: 20131213, end: 20140101
  2. INOVELON [Suspect]
     Dates: start: 20140102, end: 20140103
  3. INOVELON [Suspect]
     Dates: start: 20140104, end: 20140105
  4. MICROPAKINE [Concomitant]
     Indication: CONVULSION
     Dosage: UNKNOWN
     Dates: start: 201207
  5. RIVOTRIL [Concomitant]
     Indication: CONVULSION
     Dosage: UNKNOWN

REACTIONS (2)
  - Hypotonia [Recovered/Resolved]
  - Asthenia [Recovered/Resolved]
